FAERS Safety Report 9465986 (Version 2)
Quarter: 2013Q4

REPORT INFORMATION
  Report Type: Spontaneous
  Country: US (occurrence: US)
  Receive Date: 20130820
  Receipt Date: 20131025
  Transmission Date: 20140711
  Serious: Yes (Other)
  Sender: FDA-Public Use
  Company Number: US-FRI-1000047748

PATIENT
  Sex: Female

DRUGS (7)
  1. VIIBRYD [Suspect]
     Indication: DEPRESSION
     Dosage: 10 MG
     Route: 048
     Dates: start: 20120123, end: 20120129
  2. VIIBRYD [Suspect]
     Indication: DEPRESSION
     Dosage: 20 MG
     Route: 048
     Dates: start: 20120130, end: 20120601
  3. BENADRYL [Concomitant]
     Indication: HYPERSENSITIVITY
  4. BENADRYL [Concomitant]
     Indication: RASH
  5. AMBIEN [Concomitant]
     Indication: SLEEP DISORDER
  6. IBUPROFEN [Concomitant]
     Indication: ARTHRALGIA
  7. IBUPROFEN [Concomitant]
     Indication: ARTHRITIS

REACTIONS (1)
  - Rectal haemorrhage [Recovered/Resolved]
